FAERS Safety Report 8660315 (Version 2)
Quarter: 2012Q4

REPORT INFORMATION
  Report Type: 
  Country: FR (occurrence: FR)
  Receive Date: 20120711
  Receipt Date: 20121001
  Transmission Date: 20130627
  Serious: Yes (Hospitalization)
  Sender: FDA-Public Use
  Company Number: FR-PFIZER INC-2012160889

PATIENT
  Age: 69 Year
  Sex: Female

DRUGS (13)
  1. ZYVOXID [Suspect]
     Dosage: 600 mg, 2x/day
     Route: 048
     Dates: start: 20120409, end: 20120430
  2. PHENYTOIN [Suspect]
     Indication: PROPHYLAXIS
     Dosage: UNK
     Dates: start: 20120409, end: 20120515
  3. MERONEM [Suspect]
     Dosage: 2 g, 3x/day
     Dates: start: 20120409, end: 20120430
  4. FOSFOMYCIN [Suspect]
     Dosage: UNK
     Dates: start: 20120406
  5. CLAFORAN [Suspect]
     Dosage: UNK
     Dates: start: 20120406
  6. ACUPAN [Suspect]
     Dosage: UNK
     Dates: start: 20120409
  7. ACETAMINOPHEN [Suspect]
     Dosage: UNK
     Dates: start: 20120409
  8. AUGMENTIN [Concomitant]
     Dosage: UNK
     Dates: start: 20120403
  9. GENTAMYCIN [Concomitant]
     Dosage: UNK
     Dates: start: 20120403
  10. DIFFU K [Concomitant]
     Dosage: UNK
     Dates: start: 20120409
  11. SETRON [Concomitant]
     Dosage: UNK
     Dates: start: 20120409
  12. LOVENOX [Concomitant]
     Dosage: 0.4 UNK, 1x/day
     Dates: start: 20120409
  13. KEPPRA [Concomitant]
     Dosage: UNK
     Dates: start: 20120514, end: 20120515

REACTIONS (2)
  - Drug reaction with eosinophilia and systemic symptoms [Recovered/Resolved]
  - Stevens-Johnson syndrome [Recovered/Resolved]
